FAERS Safety Report 23819107 (Version 1)
Quarter: 2024Q2

REPORT INFORMATION
  Report Type: Spontaneous
  Country: TH (occurrence: TH)
  Receive Date: 20240506
  Receipt Date: 20240506
  Transmission Date: 20240716
  Serious: Yes (Other)
  Sender: FDA-Public Use
  Company Number: TH-AUROBINDO-AUR-APL-2024-020800

PATIENT
  Age: 52 Year
  Sex: Male

DRUGS (8)
  1. IRINOTECAN [Suspect]
     Active Substance: IRINOTECAN
     Indication: Anal cancer
     Dosage: UNK 2ND-LINE WEEKLY
     Route: 065
  2. IRINOTECAN [Suspect]
     Active Substance: IRINOTECAN
     Indication: Neuroendocrine carcinoma
  3. CARBOPLATIN [Suspect]
     Active Substance: CARBOPLATIN
     Indication: Neuroendocrine carcinoma
     Dosage: UNK 3 CYCLES
     Route: 065
  4. CARBOPLATIN [Suspect]
     Active Substance: CARBOPLATIN
     Indication: Anal cancer
  5. ETOPOSIDE [Suspect]
     Active Substance: ETOPOSIDE
     Indication: Neuroendocrine carcinoma
     Dosage: UNK 3 CYCLES
     Route: 065
  6. ETOPOSIDE [Suspect]
     Active Substance: ETOPOSIDE
     Indication: Anal cancer
  7. MORPHINE [Suspect]
     Active Substance: MORPHINE
     Indication: Neuroendocrine carcinoma
     Dosage: UNK HIGH DOSE
     Route: 065
  8. MORPHINE [Suspect]
     Active Substance: MORPHINE
     Indication: Anal cancer

REACTIONS (1)
  - Drug ineffective [Unknown]
